FAERS Safety Report 7599881 (Version 2)
Quarter: 2013Q4

REPORT INFORMATION
  Report Type: Report from Study
  Country: UY (occurrence: UY)
  Receive Date: 20100921
  Receipt Date: 20131122
  Transmission Date: 20140711
  Serious: Yes (Death, Other)
  Sender: FDA-Public Use
  Company Number: UY-ROCHE-726824

PATIENT
  Sex: 0

DRUGS (2)
  1. PEG-INTERFERON ALFA 2A [Suspect]
     Indication: CHRONIC HEPATITIS C
     Dosage: THERAPY DISCONTINUED.
     Route: 065
  2. RIBAVIRIN [Suspect]
     Indication: CHRONIC HEPATITIS C
     Dosage: 800 MG PER DAY OF RIBAVIRIN IN NON-GENOTYPE 1 OR 1,000 -1,200 MG DAILY IN GENOTYPE 1. ?GENOTYPE 1
     Route: 065

REACTIONS (6)
  - Urosepsis [Fatal]
  - Asthenia [Unknown]
  - Pulmonary tuberculosis [Unknown]
  - Tuberculous pleurisy [Unknown]
  - Panic attack [Unknown]
  - Hepatic cirrhosis [Unknown]
